FAERS Safety Report 14177455 (Version 1)
Quarter: 2017Q4

REPORT INFORMATION
  Report Type: Report from Study
  Country: PT (occurrence: PT)
  Receive Date: 20171110
  Receipt Date: 20171110
  Transmission Date: 20180321
  Serious: Yes (Other)
  Sender: FDA-Public Use
  Company Number: PT-ROCHE-2016923

PATIENT

DRUGS (1)
  1. VISMODEGIB. [Suspect]
     Active Substance: VISMODEGIB
     Indication: BASAL CELL CARCINOMA
     Route: 048

REACTIONS (8)
  - Asthenia [Unknown]
  - Decreased appetite [Unknown]
  - Pruritus [Unknown]
  - Dysgeusia [Unknown]
  - Muscle spasms [Unknown]
  - Nausea [Unknown]
  - Weight decreased [Unknown]
  - Alopecia [Unknown]
